FAERS Safety Report 7951366-7 (Version None)
Quarter: 2011Q4

REPORT INFORMATION
  Report Type: 
  Country: None (occurrence: None)
  Receive Date: 20111201
  Receipt Date: 20111125
  Transmission Date: 20120403
  Serious: Yes (Death)
  Sender: FDA-Public Use
  Company Number: US-BAYER-2010-003171

PATIENT
  Age: 39 Year
  Sex: Female
  Weight: 93.424 kg

DRUGS (2)
  1. YASMIN [Suspect]
     Indication: CONTRACEPTION
     Dosage: UNK
     Dates: start: 20050701, end: 20070301
  2. YAZ [Suspect]
     Indication: CONTRACEPTION
     Dosage: UNK
     Dates: start: 20080721, end: 20080922

REACTIONS (3)
  - CARDIO-RESPIRATORY ARREST [None]
  - PALLOR [None]
  - PERIPHERAL COLDNESS [None]
